FAERS Safety Report 26103819 (Version 1)
Quarter: 2025Q4

REPORT INFORMATION
  Report Type: Spontaneous
  Country: CN (occurrence: CN)
  Receive Date: 20251129
  Receipt Date: 20251129
  Transmission Date: 20260117
  Serious: Yes (Hospitalization, Other)
  Sender: ALEXION PHARMACEUTICALS
  Company Number: CN-ASTRAZENECA-202511CHN002544CN

PATIENT
  Age: 8 Year
  Sex: Female

DRUGS (2)
  1. KOSELUGO [Suspect]
     Active Substance: SELUMETINIB
     Indication: Neurofibromatosis
     Dosage: 10 MILLIGRAM
     Route: 065
  2. KOSELUGO [Suspect]
     Active Substance: SELUMETINIB
     Dosage: 30 MILLIGRAM
     Route: 065

REACTIONS (16)
  - Herpes pharyngitis [Unknown]
  - Urticaria [Recovered/Resolved]
  - Nasopharyngitis [Unknown]
  - Pyrexia [Unknown]
  - Measles [Unknown]
  - Oropharyngeal pain [Unknown]
  - Onychoclasis [Unknown]
  - Paronychia [Unknown]
  - Alopecia [Unknown]
  - Hair texture abnormal [Unknown]
  - Decreased appetite [Unknown]
  - Nausea [Unknown]
  - Product use issue [Unknown]
  - Vomiting [Unknown]
  - Cough [Unknown]
  - Hair colour changes [Unknown]

NARRATIVE: CASE EVENT DATE: 20250701
